FAERS Safety Report 9912727 (Version 2)
Quarter: 2014Q1

REPORT INFORMATION
  Report Type: Spontaneous
  Country: US (occurrence: US)
  Receive Date: 20140220
  Receipt Date: 20140318
  Transmission Date: 20141002
  Serious: No
  Sender: FDA-Public Use
  Company Number: US-PFIZER INC-2014046304

PATIENT
  Age: 80 Year
  Sex: Female

DRUGS (18)
  1. XALKORI [Suspect]
     Indication: LUNG NEOPLASM MALIGNANT
     Dosage: 250 MG, 2X/DAY
     Route: 048
     Dates: start: 201401, end: 20140227
  2. METOPROLOL TARTRATE [Concomitant]
     Dosage: UNK
  3. PANTOPRAZOLE SODIUM [Concomitant]
     Dosage: 40 MG, DAILY
     Route: 048
     Dates: start: 2013
  4. ATORVASTATIN CALCIUM [Concomitant]
     Dosage: UNK
  5. CYANOCOBALAMINE [Concomitant]
     Dosage: UNK
     Dates: start: 20131227, end: 20140220
  6. CALTRATE 600+D [Concomitant]
     Dosage: 1 DF, 2X/DAY
     Route: 048
  7. LIPITOR [Concomitant]
     Dosage: 20 MG, DAILY (1 (20 MG) TABLET)
     Route: 048
  8. MULTAQ [Concomitant]
     Dosage: 400 MG, DAILY
     Route: 048
  9. MULTAQ [Concomitant]
     Dosage: 200 MG, 1X/DAY (AT BED TIME)
     Route: 048
  10. VITAMIN C [Concomitant]
     Dosage: 500 MG, DAILY
     Route: 048
  11. VITAMIN D3 [Concomitant]
     Dosage: 2000 MG, DAILY
     Route: 048
  12. WARFARIN SODIUM [Concomitant]
     Dosage: 1 DF, DAILY
     Route: 048
  13. DENOSUMAB [Concomitant]
     Dosage: 120 MG, DAILY (120 MG (OF 120) SUBCUTANEOUS DAILY FOR 1 DAY)
     Route: 058
     Dates: start: 20140206, end: 20140220
  14. DEXAMETHASONE SODIUM PHOSPHATE [Concomitant]
     Dosage: UNK, 10 MG INTRAVENOUS ONCE SHORT OVER 15 MINUTES IN NS 50 ML (S)
     Route: 042
     Dates: start: 20140228, end: 20140228
  15. ACCUPRIL [Concomitant]
     Dosage: 20 MG, DAILY
     Route: 048
     Dates: end: 20140206
  16. PALONOSETRON [Concomitant]
     Dosage: UNK
     Dates: start: 20140228, end: 20140228
  17. CARBOPLATIN [Concomitant]
     Dosage: UNK
     Dates: start: 20140228, end: 20140228
  18. PEMETREXED DISODIUM [Concomitant]
     Dosage: UNK
     Dates: start: 20140228, end: 20140228

REACTIONS (8)
  - Nausea [Unknown]
  - Constipation [Unknown]
  - Ageusia [Unknown]
  - Decreased appetite [Unknown]
  - Visual impairment [Unknown]
  - Fatigue [Unknown]
  - Disease progression [Unknown]
  - Lung neoplasm malignant [Unknown]
